FAERS Safety Report 5005934-5 (Version None)
Quarter: 2006Q1

REPORT INFORMATION
  Report Type: 
  Country: None (occurrence: None)
  Receive Date: 20060320
  Receipt Date: 20050217
  Transmission Date: 20060701
  Serious: Yes (Other)
  Sender: FDA-Public Use
  Company Number: 2005-02-1473

PATIENT
  Sex: Female

DRUGS (2)
  1. PEG-INTRON [Suspect]
     Indication: HEPATITIS C
     Dates: start: 20040901
  2. REBETOL [Suspect]
     Indication: HEPATITIS C
     Dates: start: 20040901

REACTIONS (8)
  - AGEUSIA [None]
  - ANOREXIA [None]
  - ANOSMIA [None]
  - DEPRESSION [None]
  - FATIGUE [None]
  - INSOMNIA [None]
  - MEMORY IMPAIRMENT [None]
  - SUICIDAL IDEATION [None]
